FAERS Safety Report 10803780 (Version 5)
Quarter: 2019Q2

REPORT INFORMATION
  Report Type: Report from Study
  Country: CA (occurrence: CA)
  Receive Date: 20150217
  Receipt Date: 20190405
  Transmission Date: 20190711
  Serious: Yes (Hospitalization, Other)
  Sender: FDA-Public Use
  Company Number: CA-GILEAD-2015-0137222

PATIENT
  Age: 43 Year
  Sex: Male

DRUGS (21)
  1. TRIMETHOPRIM SULFAMETHOXAZOLE [Concomitant]
     Active Substance: SULFAMETHOXAZOLE\TRIMETHOPRIM
  2. BUDESONIDE;FORMOTEROL [Concomitant]
  3. HYDROCORTISONE. [Concomitant]
     Active Substance: HYDROCORTISONE
  4. AZTREONAM LYSINE [Suspect]
     Active Substance: AZTREONAM LYSINE
     Indication: PSEUDOMONAS INFECTION
  5. CIPROFLOXACIN. [Suspect]
     Active Substance: CIPROFLOXACIN
     Dosage: UNK
     Route: 048
     Dates: start: 20141201, end: 20141231
  6. AZTREONAM LYSINE [Suspect]
     Active Substance: AZTREONAM LYSINE
     Indication: CYSTIC FIBROSIS
     Dosage: 75 MG, TID
     Route: 055
     Dates: start: 20150101, end: 20150119
  7. TOBRAMYCIN. [Concomitant]
     Active Substance: TOBRAMYCIN
     Indication: INFLUENZA LIKE ILLNESS
     Dosage: UNK
     Route: 055
     Dates: start: 20141201, end: 20141231
  8. XOLAIR [Concomitant]
     Active Substance: OMALIZUMAB
  9. TOBRAMYCIN. [Concomitant]
     Active Substance: TOBRAMYCIN
     Dosage: UNK
     Route: 042
     Dates: start: 20150101, end: 20150117
  10. CICLESONIDE [Concomitant]
     Active Substance: CICLESONIDE
  11. VANCOMYCIN [Concomitant]
     Active Substance: VANCOMYCIN
     Indication: INFLUENZA LIKE ILLNESS
     Dosage: UNK
     Route: 042
     Dates: start: 20150101, end: 20150117
  12. CIPROFLOXACIN. [Suspect]
     Active Substance: CIPROFLOXACIN
     Indication: INFLUENZA LIKE ILLNESS
     Dosage: UNK
     Route: 048
     Dates: start: 20150101, end: 20150115
  13. INSULIN [Concomitant]
     Active Substance: INSULIN NOS
  14. MEROPENEM. [Suspect]
     Active Substance: MEROPENEM
     Indication: INFLUENZA LIKE ILLNESS
     Dosage: UNK
     Route: 042
     Dates: start: 20150101, end: 20150117
  15. ZITHROMAX [Concomitant]
     Active Substance: AZITHROMYCIN DIHYDRATE
  16. MONTELUKAST [Concomitant]
     Active Substance: MONTELUKAST SODIUM
  17. OMALIZUMAB. [Concomitant]
     Active Substance: OMALIZUMAB
  18. VITAMINS NOS [Concomitant]
     Active Substance: VITAMINS
  19. TAMIFLU [Concomitant]
     Active Substance: OSELTAMIVIR PHOSPHATE
     Dosage: UNK
     Dates: start: 20141220, end: 20141225
  20. OSELTAMIVIR [Concomitant]
     Active Substance: OSELTAMIVIR
  21. PANCREATIC ENZYMES [Concomitant]
     Active Substance: UNSPECIFIED INGREDIENT

REACTIONS (2)
  - Stevens-Johnson syndrome [Recovered/Resolved]
  - Toxic epidermal necrolysis [Recovered/Resolved]

NARRATIVE: CASE EVENT DATE: 201501
